FAERS Safety Report 6014110-9 (Version None)
Quarter: 2008Q4

REPORT INFORMATION
  Report Type: 
  Country: None (occurrence: None)
  Receive Date: 20081219
  Receipt Date: 20071207
  Transmission Date: 20090506
  Serious: No
  Sender: FDA-Public Use
  Company Number: A0698680A

PATIENT
  Age: 53 Year
  Sex: Male

DRUGS (3)
  1. AVODART [Suspect]
     Dosage: .5MG PER DAY
     Route: 048
     Dates: start: 20060101
  2. GLUCOVANCE [Concomitant]
  3. LISINOPRIL [Concomitant]

REACTIONS (1)
  - HAEMORRHAGE URINARY TRACT [None]
